FAERS Safety Report 7094684-X (Version None)
Quarter: 2010Q4

REPORT INFORMATION
  Report Type: 
  Country: None (occurrence: None)
  Receive Date: 20101110
  Receipt Date: 20090112
  Transmission Date: 20110411
  Serious: No
  Sender: FDA-Public Use
  Company Number: US-KINGPHARMUSA00001-K200900111

PATIENT
  Sex: Female

DRUGS (4)
  1. LEVOXYL [Suspect]
     Indication: HYPOTHYROIDISM
     Dosage: 50 MCG, QD
     Route: 048
     Dates: start: 19970101, end: 20080401
  2. LEVOXYL [Suspect]
     Dosage: 75 MCG, QD
     Route: 048
     Dates: start: 20080401, end: 20090101
  3. LEVOXYL [Suspect]
     Dosage: 50 MCG, (1.5 TABLETS TO EQUAL 75MCG), QD
     Route: 048
     Dates: start: 20090101
  4. TAGAMET                            /00397401/ [Suspect]
     Dosage: UNK
     Dates: start: 20080901, end: 20081001

REACTIONS (2)
  - ALOPECIA [None]
  - HYPERSENSITIVITY [None]
